FAERS Safety Report 4581332-3 (Version None)
Quarter: 2005Q1

REPORT INFORMATION
  Report Type: 
  Country: None (occurrence: None)
  Receive Date: 20050214
  Receipt Date: 20040929
  Transmission Date: 20050727
  Serious: No
  Sender: FDA-Public Use
  Company Number: US-GLAXOSMITHKLINE-A0527772A

PATIENT
  Age: 14 Year
  Sex: Female

DRUGS (4)
  1. LAMICTAL [Suspect]
     Indication: ILL-DEFINED DISORDER
     Dosage: 400MG PER DAY
     Route: 048
     Dates: start: 20040928, end: 20040928
  2. TRAZODONE HCL [Suspect]
     Indication: ILL-DEFINED DISORDER
     Route: 065
  3. DEPAKOTE [Concomitant]
  4. RISPERDAL [Concomitant]

REACTIONS (1)
  - HEADACHE [None]
